FAERS Safety Report 12784315 (Version 1)
Quarter: 2016Q3

REPORT INFORMATION
  Report Type: Spontaneous
  Country: JP (occurrence: JP)
  Receive Date: 20160927
  Receipt Date: 20160927
  Transmission Date: 20161109
  Serious: Yes (Other)
  Sender: FDA-Public Use
  Company Number: JP-BEH-200812781

PATIENT
  Age: 4 Year
  Sex: Female

DRUGS (2)
  1. SANGLOPOR [Suspect]
     Active Substance: HUMAN IMMUNOGLOBULIN G
     Indication: INFECTION
     Dosage: DAILY DOSE QUANTITY: 2.5, DAILY DOSE UNIT: G
     Route: 042
     Dates: start: 20080108, end: 20080110
  2. CEFTAZIDIME. [Concomitant]
     Active Substance: CEFTAZIDIME

REACTIONS (2)
  - Toxic skin eruption [Recovered/Resolved]
  - Swelling [Recovered/Resolved]

NARRATIVE: CASE EVENT DATE: 20080110
